FAERS Safety Report 9025230 (Version 1)
Quarter: 2013Q1

REPORT INFORMATION
  Report Type: Report from Study
  Country: US (occurrence: US)
  Receive Date: 20130122
  Receipt Date: 20130122
  Transmission Date: 20140127
  Serious: Yes (Hospitalization)
  Sender: FDA-Public Use
  Company Number: US-TEVA-379981USA

PATIENT
  Age: 50 None
  Sex: Female

DRUGS (1)
  1. COPAXONE [Suspect]
     Indication: MULTIPLE SCLEROSIS
     Dates: start: 20130103

REACTIONS (5)
  - Post procedural complication [Unknown]
  - Dizziness [Unknown]
  - Electrolyte imbalance [Unknown]
  - Head discomfort [Unknown]
  - Infection [Unknown]
